FAERS Safety Report 14647508 (Version 1)
Quarter: 2018Q1

REPORT INFORMATION
  Report Type: Spontaneous
  Country: DE (occurrence: DE)
  Receive Date: 20180316
  Receipt Date: 20180316
  Transmission Date: 20180509
  Serious: Yes (Other)
  Sender: FDA-Public Use
  Company Number: DE-MYLANLABS-2018M1016324

PATIENT
  Age: 60 Year
  Sex: Female
  Weight: 55 kg

DRUGS (3)
  1. VITAMIN D                          /00107901/ [Concomitant]
     Active Substance: ERGOCALCIFEROL
     Indication: PRODUCT USED FOR UNKNOWN INDICATION
     Dosage: 20000 IU, MONTHLY
     Route: 048
     Dates: start: 201302
  2. DENOSUMAB [Suspect]
     Active Substance: DENOSUMAB
     Indication: BONE DISORDER
     Dosage: UNK
     Route: 065
     Dates: start: 201302
  3. ALENDRONATE [Suspect]
     Active Substance: ALENDRONATE SODIUM
     Indication: BONE DISORDER
     Dosage: UNK
     Route: 065

REACTIONS (2)
  - Lumbar vertebral fracture [Unknown]
  - Low turnover osteopathy [Recovering/Resolving]

NARRATIVE: CASE EVENT DATE: 201302
